FAERS Safety Report 25522755 (Version 1)
Quarter: 2025Q3

REPORT INFORMATION
  Report Type: Spontaneous
  Country: US (occurrence: US)
  Receive Date: 20250707
  Receipt Date: 20250707
  Transmission Date: 20251020
  Serious: Yes (Hospitalization, Other)
  Sender: ABBVIE
  Company Number: US-ABBVIE-6354639

PATIENT
  Sex: Male

DRUGS (1)
  1. UPADACITINIB [Suspect]
     Active Substance: UPADACITINIB
     Indication: Crohn^s disease
     Route: 048
     Dates: start: 202309

REACTIONS (7)
  - Small intestinal obstruction [Unknown]
  - Nasal congestion [Unknown]
  - Lacrimation increased [Unknown]
  - Blood immunoglobulin E increased [Not Recovered/Not Resolved]
  - Polypectomy [Unknown]
  - Neuroendocrine tumour [Unknown]
  - Urticaria [Unknown]

NARRATIVE: CASE EVENT DATE: 20240701
